FAERS Safety Report 9274149 (Version 2)
Quarter: 2013Q2

REPORT INFORMATION
  Report Type: Spontaneous
  Country: US (occurrence: US)
  Receive Date: 20130506
  Receipt Date: 20130516
  Transmission Date: 20140414
  Serious: Yes (Other)
  Sender: FDA-Public Use
  Company Number: US-BAYER-2013-054159

PATIENT
  Age: 53 Year
  Sex: Male
  Weight: 72.56 kg

DRUGS (4)
  1. PHILLIPS^ MILK OF MAGNESIA [Suspect]
     Indication: CONSTIPATION
     Dosage: 1-2 TBSP, QOD
     Route: 048
     Dates: end: 201304
  2. PHILLIPS^ MILK OF MAGNESIA [Suspect]
     Indication: CONSTIPATION
     Dosage: 1-2 TBSP QOD
     Route: 048
  3. PHILLIPS^ MILK OF MAGNESIA [Suspect]
     Indication: CONSTIPATION
     Dosage: UNK UNK, QOD
  4. BACLOFEN [Concomitant]

REACTIONS (6)
  - Haematochezia [Recovered/Resolved]
  - Product taste abnormal [None]
  - Product odour abnormal [None]
  - Product colour issue [None]
  - Red blood cell count decreased [Recovered/Resolved]
  - Haematochezia [Recovered/Resolved]
